FAERS Safety Report 9949924 (Version 1)
Quarter: 2014Q1

REPORT INFORMATION
  Report Type: Spontaneous
  Country: US (occurrence: US)
  Receive Date: 20140304
  Receipt Date: 20140304
  Transmission Date: 20141002
  Serious: No
  Sender: FDA-Public Use
  Company Number: US-ABBVIE-13P-163-1070196-00

PATIENT
  Age: 53 Year
  Sex: Female
  Weight: 54.48 kg

DRUGS (4)
  1. HUMIRA [Suspect]
     Indication: SARCOIDOSIS
     Dates: start: 20130316
  2. PRILOSEC [Concomitant]
     Indication: GASTROOESOPHAGEAL REFLUX DISEASE
  3. PREDNISONE [Concomitant]
     Indication: SARCOIDOSIS
  4. MVI [Concomitant]
     Indication: SUPPLEMENTATION THERAPY

REACTIONS (2)
  - Off label use [Not Recovered/Not Resolved]
  - Injection site erythema [Not Recovered/Not Resolved]
